FAERS Safety Report 20369435 (Version 1)
Quarter: 2022Q1

REPORT INFORMATION
  Report Type: Spontaneous
  Country: FR (occurrence: FR)
  Receive Date: 20220124
  Receipt Date: 20220124
  Transmission Date: 20220423
  Serious: Yes (Other)
  Sender: FDA-Public Use
  Company Number: None

PATIENT
  Age: 19 Year
  Sex: Male

DRUGS (5)
  1. DIAZEPAM [Suspect]
     Active Substance: DIAZEPAM
     Dosage: 50MG (10 TABS AT 5MG)
     Route: 065
     Dates: start: 20200217, end: 20200217
  2. DIAZEPAM [Suspect]
     Active Substance: DIAZEPAM
     Dosage: 10MG (2 TABS OF 5MG)
     Route: 045
     Dates: start: 20200219, end: 20200219
  3. ALCOHOL [Suspect]
     Active Substance: ALCOHOL
     Dosage: UNSPECIFIED
     Route: 048
  4. ZUCLOPENTHIXOL [Suspect]
     Active Substance: ZUCLOPENTHIXOL
     Dosage: 400 MG ( 2 AMPOULES), CLOPIXOL LONG ACTION 200 MG/1 ML, SOLUTION FOR INJECTION I.M.
     Route: 065
     Dates: start: 20200217, end: 20200217
  5. CANNABIS SATIVA SUBSP. INDICA TOP [Suspect]
     Active Substance: CANNABIS SATIVA SUBSP. INDICA TOP
     Dosage: UNSPECIFIED
     Route: 055

REACTIONS (4)
  - Tremor [Recovering/Resolving]
  - Electrocardiogram repolarisation abnormality [Recovering/Resolving]
  - Drug abuse [Not Recovered/Not Resolved]
  - Malaise [Recovered/Resolved]

NARRATIVE: CASE EVENT DATE: 20200219
